FAERS Safety Report 8286337-7 (Version None)
Quarter: 2012Q2

REPORT INFORMATION
  Report Type: 
  Country: None (occurrence: None)
  Receive Date: 20120411
  Receipt Date: 20120328
  Transmission Date: 20120825
  Serious: Yes (Hospitalization)
  Sender: FDA-Public Use
  Company Number: 2012031796

PATIENT
  Age: 33 Year
  Sex: Male

DRUGS (7)
  1. PRIVIGEN [Suspect]
     Dosage: 1 VIAL 20G, MAX RATE OF INFUSIOSN 60 ML/H
     Dates: start: 20120130, end: 20120130
  2. PRIVIGEN [Suspect]
     Indication: IMMUNODEFICIENCY COMMON VARIABLE
     Dosage: 1 VIAL 20G
     Dates: start: 20111128, end: 20111128
  3. PRIVIGEN [Suspect]
     Dosage: 2 VIALS 10G
     Dates: start: 20111129, end: 20111129
  4. PRIVIGEN [Suspect]
     Dosage: 1 VIAL 20G
     Dates: start: 20111129, end: 20111129
  5. PRIVIGEN [Suspect]
     Dosage: 1 VIAL 20G
     Dates: start: 20111227, end: 20111227
  6. PRIVIGEN [Suspect]
     Dosage: 1 VIAL 10G
     Dates: start: 20111227, end: 20111227
  7. PRIVIGEN [Suspect]
     Dosage: 2 VIALS 10G
     Dates: start: 20111128, end: 20111128

REACTIONS (4)
  - INFUSION RELATED REACTION [None]
  - ANAPHYLACTOID REACTION [None]
  - HYPERTENSION [None]
  - INFLUENZA LIKE ILLNESS [None]
